FAERS Safety Report 23644533 (Version 3)
Quarter: 2024Q2

REPORT INFORMATION
  Report Type: Spontaneous
  Country: BR (occurrence: BR)
  Receive Date: 20240318
  Receipt Date: 20240403
  Transmission Date: 20240716
  Serious: Yes (Hospitalization, Other)
  Sender: FDA-Public Use
  Company Number: BR-009507513-2403BRA005161

PATIENT
  Age: 72 Year
  Sex: Male

DRUGS (1)
  1. PEMBROLIZUMAB [Suspect]
     Active Substance: PEMBROLIZUMAB
     Indication: Lung cancer metastatic
     Dosage: UNK

REACTIONS (1)
  - Illness [Unknown]
